FAERS Safety Report 11426513 (Version 1)
Quarter: 2015Q3

REPORT INFORMATION
  Report Type: Spontaneous
  Country: US (occurrence: US)
  Receive Date: 20150821
  Receipt Date: 20150821
  Transmission Date: 20151125
  Serious: No
  Sender: FDA-Public Use
  Company Number: US-ELI_LILLY_AND_COMPANY-US201303003851

PATIENT
  Sex: Female
  Weight: 124.26 kg

DRUGS (5)
  1. HUMULIN R [Suspect]
     Active Substance: INSULIN HUMAN
     Dosage: 37 U, EACH EVENING
     Route: 058
  2. HUMULIN R [Suspect]
     Active Substance: INSULIN HUMAN
     Dosage: 37 U, EACH EVENING
     Route: 058
     Dates: start: 2009
  3. HUMULIN R [Suspect]
     Active Substance: INSULIN HUMAN
     Dosage: 33 U, EACH MORNING
     Route: 058
  4. HUMULIN R [Suspect]
     Active Substance: INSULIN HUMAN
     Dosage: 0.3 ML, UNK
     Dates: start: 201203
  5. HUMULIN R [Suspect]
     Active Substance: INSULIN HUMAN
     Indication: INSULIN-REQUIRING TYPE 2 DIABETES MELLITUS
     Dosage: 33 U, EACH MORNING
     Route: 058
     Dates: start: 2009

REACTIONS (4)
  - Ear congestion [Recovered/Resolved]
  - Visual acuity reduced [Recovered/Resolved]
  - Bronchitis [Recovered/Resolved]
  - Upper-airway cough syndrome [Recovered/Resolved]
